FAERS Safety Report 8539821-2 (Version None)
Quarter: 2012Q3

REPORT INFORMATION
  Report Type: 
  Country: None (occurrence: None)
  Receive Date: 20120726
  Receipt Date: 20120530
  Transmission Date: 20120928
  Serious: No
  Sender: FDA-Public Use
  Company Number: US-MYLANLABS-2012S1011304

PATIENT
  Age: 66 Year
  Sex: Male
  Weight: 72.58 kg

DRUGS (2)
  1. TAMSULOSIN HCL [Suspect]
     Indication: PROSTATOMEGALY
     Route: 048
     Dates: start: 20120323
  2. LEVOTHYROXINE SODIUM [Concomitant]
     Route: 048

REACTIONS (4)
  - DIZZINESS [None]
  - OEDEMA PERIPHERAL [None]
  - VISION BLURRED [None]
  - PAIN IN EXTREMITY [None]
